FAERS Safety Report 19804532 (Version 2)
Quarter: 2021Q3

REPORT INFORMATION
  Report Type: Spontaneous
  Country: CN (occurrence: CN)
  Receive Date: 20210908
  Receipt Date: 20210910
  Transmission Date: 20211014
  Serious: Yes (Other)
  Sender: FDA-Public Use
  Company Number: CN-PFIZER INC-202101119496

PATIENT
  Age: 78 Year
  Sex: Female

DRUGS (1)
  1. TAZOCIN [Suspect]
     Active Substance: PIPERACILLIN SODIUM\TAZOBACTAM SODIUM
     Indication: SEPSIS
     Dosage: 4.5 G, 3X/DAY
     Route: 041
     Dates: start: 20210727, end: 20210730

REACTIONS (4)
  - Melaena [Recovering/Resolving]
  - Platelet count decreased [Recovering/Resolving]
  - Gastrointestinal haemorrhage [Recovering/Resolving]
  - Occult blood positive [Recovering/Resolving]

NARRATIVE: CASE EVENT DATE: 20210729
